FAERS Safety Report 4785447-6 (Version None)
Quarter: 2005Q3

REPORT INFORMATION
  Report Type: 
  Country: None (occurrence: None)
  Receive Date: 20050929
  Receipt Date: 20050915
  Transmission Date: 20060218
  Serious: Yes (Hospitalization)
  Sender: FDA-Public Use
  Company Number: S05-GER-03552-01

PATIENT
  Age: 68 Year
  Sex: Male

DRUGS (11)
  1. CIPRALEX              (ESCITALOPRAM) [Suspect]
     Indication: ANXIETY
     Dosage: 10 MG QD PO
     Route: 048
     Dates: start: 20050201, end: 20050701
  2. CIPRALEX              (ESCITALOPRAM) [Suspect]
     Indication: PANIC DISORDER
     Dosage: 10 MG QD PO
     Route: 048
     Dates: start: 20050201, end: 20050701
  3. CLORAZEPATE DIPOTASSIUM [Suspect]
     Indication: ANXIETY
  4. CLORAZEPATE DIPOTASSIUM [Suspect]
     Indication: PANIC DISORDER
  5. EDRONAX                (REBOXETINE) [Concomitant]
  6. DIGOXIN [Concomitant]
  7. GLUCOPHAGE                (METFORMIN HYDROCHLORIDE) (METFORMIN) [Concomitant]
  8. DOXEPIN HCL [Concomitant]
  9. APROVEL (IRBESARTAN) [Concomitant]
  10. AQUAPHOR TABLET (XIPAMIDE) [Concomitant]
  11. ACETYLSALICYLIC ACID SRT [Concomitant]

REACTIONS (4)
  - CYTOMEGALOVIRUS INFECTION [None]
  - EPSTEIN-BARR VIRUS INFECTION [None]
  - HEPATITIS TOXIC [None]
  - SERUM FERRITIN INCREASED [None]
